FAERS Safety Report 4677314-3 (Version None)
Quarter: 2005Q2

REPORT INFORMATION
  Report Type: 
  Country: None (occurrence: None)
  Receive Date: 20050531
  Receipt Date: 20050524
  Transmission Date: 20051028
  Serious: Yes (Hospitalization)
  Sender: FDA-Public Use
  Company Number: 200511035DE

PATIENT
  Age: 32 Year
  Sex: Female

DRUGS (6)
  1. DOCETAXEL [Suspect]
     Indication: BREAST CANCER
     Dates: start: 20050504, end: 20050504
  2. CYCLOPHOSPHAMIDE [Suspect]
     Indication: BREAST CANCER
     Dates: start: 20050504, end: 20050504
  3. ADRIAMYCIN PFS [Suspect]
     Indication: BREAST CANCER
     Dates: start: 20050504, end: 20050504
  4. FORTECORTIN [Suspect]
     Dates: end: 20050504
  5. KEVATRIL [Suspect]
     Dates: end: 20050504
  6. UROMITEXAN [Suspect]
     Dates: end: 20050504

REACTIONS (1)
  - ACUTE STRESS DISORDER [None]
